FAERS Safety Report 6489870-3 (Version None)
Quarter: 2009Q4

REPORT INFORMATION
  Report Type: 
  Country: None (occurrence: None)
  Receive Date: 20091210
  Receipt Date: 20091210
  Transmission Date: 20100525
  Serious: Yes (Other)
  Sender: FDA-Public Use
  Company Number: None

PATIENT
  Sex: Female
  Weight: 81.8 kg

DRUGS (1)
  1. GLYBURIDE [Suspect]
     Indication: TYPE 2 DIABETES MELLITUS
     Dosage: 2.5 MG 4 TIMES A DAY
     Dates: start: 20091201

REACTIONS (2)
  - PRODUCT LOT NUMBER ISSUE [None]
  - PRODUCT SUBSTITUTION ISSUE [None]
